FAERS Safety Report 4556516-0 (Version None)
Quarter: 2005Q1

REPORT INFORMATION
  Report Type: 
  Country: None (occurrence: None)
  Receive Date: 20050118
  Receipt Date: 20050103
  Transmission Date: 20050727
  Serious: Yes (Congenital Anomaly)
  Sender: FDA-Public Use
  Company Number: 2004UW13540

PATIENT
  Sex: Male

DRUGS (6)
  1. PULMICORT [Suspect]
     Dates: end: 20011101
  2. VENTOLIN [Suspect]
     Dates: end: 20011101
  3. ALBUTEROL [Concomitant]
  4. IRON [Concomitant]
  5. FENTANYL [Concomitant]
  6. MIDAZOLAM HCL [Concomitant]

REACTIONS (16)
  - APGAR SCORE LOW [None]
  - CARDIOVASCULAR DISORDER [None]
  - CEREBRAL PALSY [None]
  - CONGENITAL ANOMALY [None]
  - CONVULSION NEONATAL [None]
  - DRUG EXPOSURE DURING PREGNANCY [None]
  - FOETAL DISTRESS SYNDROME [None]
  - HYPOGLYCAEMIA NEONATAL [None]
  - MALAISE [None]
  - MECONIUM IN AMNIOTIC FLUID [None]
  - NEONATAL DISORDER [None]
  - NEONATAL RESPIRATORY DEPRESSION [None]
  - NEONATAL TACHYCARDIA [None]
  - NERVOUS SYSTEM DISORDER [None]
  - OXYGEN SATURATION DECREASED [None]
  - URINE OUTPUT DECREASED [None]
